FAERS Safety Report 5321749-2 (Version None)
Quarter: 2007Q2

REPORT INFORMATION
  Report Type: 
  Country: None (occurrence: None)
  Receive Date: 20070510
  Receipt Date: 20070503
  Transmission Date: 20071010
  Serious: Yes (Hospitalization, Other)
  Sender: FDA-Public Use
  Company Number: US-PFIZER INC-2006133688

PATIENT
  Sex: Male

DRUGS (2)
  1. CELEBREX [Suspect]
     Indication: PAIN MANAGEMENT
     Route: 048
  2. VIOXX [Suspect]
     Route: 048
     Dates: start: 20020101, end: 20040901

REACTIONS (1)
  - ISCHAEMIC STROKE [None]
